FAERS Safety Report 11458916 (Version 4)
Quarter: 2015Q4

REPORT INFORMATION
  Report Type: Spontaneous
  Country: US (occurrence: None)
  Receive Date: 20150904
  Receipt Date: 20151015
  Transmission Date: 20160304
  Serious: Yes (Other)
  Sender: FDA-Public Use
  Company Number: US-MDT-ADR-2015-01706

PATIENT
  Age: 50 Year
  Sex: Female

DRUGS (2)
  1. ORAL ANTIBIOTICS [Suspect]
     Active Substance: UNSPECIFIED INGREDIENT
  2. LIORESAL [Suspect]
     Active Substance: BACLOFEN
     Indication: MUSCLE SPASTICITY
     Dosage: 289.9 MCG/DAY

REACTIONS (3)
  - Urinary tract infection [None]
  - Muscle spasticity [None]
  - Culture urine positive [None]
